FAERS Safety Report 5141423-5 (Version None)
Quarter: 2006Q4

REPORT INFORMATION
  Report Type: 
  Country: None (occurrence: None)
  Receive Date: 20061101
  Receipt Date: 20061025
  Transmission Date: 20070319
  Serious: Yes (Other)
  Sender: FDA-Public Use
  Company Number: DH20061025/1

PATIENT
  Sex: Male

DRUGS (1)
  1. SEROXAT [Suspect]
     Indication: DRUG USE FOR UNKNOWN INDICATION
     Dosage: 20MG PER DAY
     Route: 065

REACTIONS (5)
  - DEPRESSION [None]
  - DIZZINESS [None]
  - FEELING ABNORMAL [None]
  - MOOD SWINGS [None]
  - SUICIDAL IDEATION [None]
